FAERS Safety Report 6370418-9 (Version None)
Quarter: 2009Q3

REPORT INFORMATION
  Report Type: 
  Country: None (occurrence: None)
  Receive Date: 20090921
  Receipt Date: 20090921
  Transmission Date: 20100115
  Serious: Yes (Hospitalization)
  Sender: FDA-Public Use
  Company Number: None

PATIENT
  Sex: Female
  Weight: 54.43 kg

DRUGS (5)
  1. CISPLATIN [Suspect]
     Dosage: 79 MG
     Dates: end: 20090818
  2. TAXOL [Suspect]
     Dosage: 212 MG
     Dates: end: 20090817
  3. OXYCODONE HCL [Concomitant]
  4. PROMETHAZINE [Concomitant]
  5. ZOLPIDEM [Concomitant]

REACTIONS (2)
  - ABDOMINAL PAIN [None]
  - DECREASED APPETITE [None]
